FAERS Safety Report 20794857 (Version 2)
Quarter: 2023Q2

REPORT INFORMATION
  Report Type: Spontaneous
  Country: US (occurrence: US)
  Receive Date: 20220506
  Receipt Date: 20230531
  Transmission Date: 20230722
  Serious: No
  Sender: FDA-Public Use
  Company Number: US-UCBSA-2021042439

PATIENT
  Age: 29 Year
  Sex: Female

DRUGS (2)
  1. CERTOLIZUMAB PEGOL [Suspect]
     Active Substance: CERTOLIZUMAB PEGOL
     Indication: Psoriasis
     Dosage: 400 MILLIGRAM, EV 2 WEEKS(QOW)
     Dates: start: 20210905, end: 2021
  2. CERTOLIZUMAB PEGOL [Suspect]
     Active Substance: CERTOLIZUMAB PEGOL
     Dosage: 200 MILLIGRAM, EV 2 WEEKS(QOW)
     Route: 058
     Dates: start: 2021, end: 20211117

REACTIONS (10)
  - Dysphagia [Recovering/Resolving]
  - Feeling hot [Recovering/Resolving]
  - Ear discomfort [Not Recovered/Not Resolved]
  - Pruritus [Recovering/Resolving]
  - Palmar erythema [Not Recovered/Not Resolved]
  - Mouth swelling [Not Recovered/Not Resolved]
  - Pyrexia [Recovering/Resolving]
  - Eye pain [Recovering/Resolving]
  - Paraesthesia [Recovering/Resolving]
  - Migraine [Recovered/Resolved]

NARRATIVE: CASE EVENT DATE: 20210905
